FAERS Safety Report 20084367 (Version 1)
Quarter: 2021Q4

REPORT INFORMATION
  Report Type: Other
  Country: None (occurrence: AE)
  Receive Date: 20211118
  Receipt Date: 20211118
  Transmission Date: 20220303
  Serious: Yes (Life-Threatening, Hospitalization, Other)
  Sender: FDA-Public Use
  Company Number: AE-YoungTech Pharmaceuticals, Inc.-2121999

PATIENT
  Age: 69 Year
  Sex: Male

DRUGS (3)
  1. METOPROLOL TARTRATE [Suspect]
     Active Substance: METOPROLOL TARTRATE
     Indication: Product used for unknown indication
     Route: 048
  2. LORAZEPAM [Suspect]
     Active Substance: LORAZEPAM
     Route: 065
  3. HYDROXYZINE [Suspect]
     Active Substance: HYDROXYZINE HYDROCHLORIDE
     Route: 065

REACTIONS (13)
  - Acute kidney injury [Recovering/Resolving]
  - Metabolic acidosis [Recovering/Resolving]
  - Heart rate decreased [Recovering/Resolving]
  - Pulmonary oedema [Recovering/Resolving]
  - Delirium [Recovering/Resolving]
  - Hyporesponsive to stimuli [Recovering/Resolving]
  - Hypopnoea [Recovering/Resolving]
  - Overdose [Recovering/Resolving]
  - Poor peripheral circulation [Recovering/Resolving]
  - Bronchial secretion retention [Recovering/Resolving]
  - Blood pressure decreased [Recovering/Resolving]
  - Ejection fraction decreased [Recovering/Resolving]
  - Atrioventricular block [Recovering/Resolving]
